FAERS Safety Report 4906795-2 (Version None)
Quarter: 2006Q1

REPORT INFORMATION
  Report Type: 
  Country: None (occurrence: None)
  Receive Date: 20060113
  Receipt Date: 20050924
  Transmission Date: 20060701
  Serious: No
  Sender: FDA-Public Use
  Company Number: 2005SP003236

PATIENT
  Age: 58 Year
  Sex: Female
  Weight: 90.7194 kg

DRUGS (7)
  1. LUNESTA [Suspect]
     Indication: INSOMNIA
     Dosage: 2 MG;ORAL
     Route: 048
     Dates: start: 20050101
  2. ATORVASTATIN CALCIUM [Concomitant]
  3. LASIX [Concomitant]
  4. POTASSIUM [Concomitant]
  5. METOPROLOL [Concomitant]
  6. KLONOPIN [Concomitant]
  7. AVALIDE [Concomitant]

REACTIONS (1)
  - DYSGEUSIA [None]
